FAERS Safety Report 17280051 (Version 11)
Quarter: 2022Q1

REPORT INFORMATION
  Report Type: Spontaneous
  Country: GB (occurrence: GB)
  Receive Date: 20200117
  Receipt Date: 20220111
  Transmission Date: 20220424
  Serious: Yes (Life-Threatening, Hospitalization, Other)
  Sender: FDA-Public Use
  Company Number: GB-SUN PHARMACEUTICAL INDUSTRIES LTD-2020RR-233579

PATIENT
  Age: 27 Year
  Sex: Male

DRUGS (3)
  1. PREGABALIN [Suspect]
     Active Substance: PREGABALIN
     Indication: Product used for unknown indication
     Dosage: 300 MILLIGRAM, UNK, EXACT AMOUNT OF DRUGS INGESTED WERE UNCLEAR, BUT HE MIGHT HAD INGESTED TRIVIAL A
     Route: 065
  2. LEVOTHYROXINE [Suspect]
     Active Substance: LEVOTHYROXINE
     Indication: Product used for unknown indication
     Dosage: 200 MICROGRAM, UNK,EXACT AMOUNT OF DRUGS INGESTED WERE UNCLEAR, BUT HE MIGHT HAD INGESTED TRIVIAL AM
     Route: 065
  3. PERAMPANEL [Suspect]
     Active Substance: PERAMPANEL
     Indication: Product used for unknown indication
     Dosage: 42 MILLIGRAM, UNK, EXACT AMOUNT OF DRUGS INGESTED WERE UNCLEAR, BUT HE MIGHT HAD INGESTED PERAMPANEL
     Route: 048

REACTIONS (8)
  - Suicide attempt [Recovered/Resolved]
  - Intentional overdose [Recovered/Resolved]
  - Loss of consciousness [Recovered/Resolved]
  - Hypoventilation [Recovered/Resolved]
  - Acute respiratory distress syndrome [Recovered/Resolved]
  - Respiratory failure [Recovered/Resolved]
  - Toxicity to various agents [Recovered/Resolved]
  - Pneumonia aspiration [Recovered/Resolved]
